FAERS Safety Report 7170218-6 (Version None)
Quarter: 2010Q4

REPORT INFORMATION
  Report Type: 
  Country: None (occurrence: None)
  Receive Date: 20101123
  Receipt Date: 20100923
  Transmission Date: 20110411
  Serious: No
  Sender: FDA-Public Use
  Company Number: 019272

PATIENT
  Sex: Male
  Weight: 97.5 kg

DRUGS (10)
  1. CIMZIA [Suspect]
     Indication: CROHN'S DISEASE
     Dosage: SEE IMAGE
     Route: 058
     Dates: start: 20090101
  2. PRAVACHOL [Concomitant]
  3. MONOPRIL /00915301/ [Concomitant]
  4. HYDROCHLOROTHIAZIDE [Concomitant]
  5. COLESTID [Concomitant]
  6. ENTOCORT EC [Concomitant]
  7. VITAMIN B12 /00056201/ [Concomitant]
  8. MULTI-VITAMINS [Concomitant]
  9. NEXIUM [Concomitant]
  10. .. [Concomitant]

REACTIONS (2)
  - ABDOMINAL PAIN [None]
  - DIARRHOEA [None]
